FAERS Safety Report 26061449 (Version 1)
Quarter: 2025Q4

REPORT INFORMATION
  Report Type: Other
  Country: US (occurrence: US)
  Receive Date: 20251118
  Receipt Date: 20251118
  Transmission Date: 20260117
  Serious: Yes (Hospitalization)
  Sender: MISSION PHARMACAL COMPANY
  Company Number: US-Mission Pharmacal Company-2188823

PATIENT
  Age: 85 Year
  Sex: Male

DRUGS (18)
  1. GABAPENTIN [Suspect]
     Active Substance: GABAPENTIN
  2. THIOLA EC [Concomitant]
     Active Substance: TIOPRONIN
     Dates: start: 20210221
  3. TAMSULOSIN [Concomitant]
     Active Substance: TAMSULOSIN
  4. ALBUTEROL [Concomitant]
     Active Substance: ALBUTEROL
  5. PANTOPRAZOLE [Concomitant]
     Active Substance: PANTOPRAZOLE
  6. LOSARTAN [Concomitant]
     Active Substance: LOSARTAN
  7. PROLIA [Concomitant]
     Active Substance: DENOSUMAB
  8. VITAMIN B12 [Concomitant]
     Active Substance: CYANOCOBALAMIN
  9. VITAMIN D [Concomitant]
     Active Substance: VITAMIN D NOS
  10. DONEPEZIL [Concomitant]
     Active Substance: DONEPEZIL
  11. ELIQUIS [Concomitant]
     Active Substance: APIXABAN
  12. ATORVASTATIN [Concomitant]
     Active Substance: ATORVASTATIN
  13. ASPIRIN [Concomitant]
     Active Substance: ASPIRIN
  14. JARDIANCE [Concomitant]
     Active Substance: EMPAGLIFLOZIN
  15. VESICARE [Concomitant]
     Active Substance: SOLIFENACIN SUCCINATE
  16. DIVALPROEX SODIUM [Concomitant]
     Active Substance: DIVALPROEX SODIUM
  17. PREDNISONE [Concomitant]
     Active Substance: PREDNISONE
  18. LEVOTHYROXINE [Concomitant]
     Active Substance: LEVOTHYROXINE

REACTIONS (1)
  - Pneumonia [Unknown]
